FAERS Safety Report 5810112-3 (Version None)
Quarter: 2008Q3

REPORT INFORMATION
  Report Type: 
  Country: None (occurrence: None)
  Receive Date: 20080715
  Receipt Date: 20070608
  Transmission Date: 20090109
  Serious: No
  Sender: FDA-Public Use
  Company Number: A0654877A

PATIENT
  Age: 49 Year
  Sex: Female

DRUGS (4)
  1. IMITREX [Suspect]
     Indication: MIGRAINE
     Dosage: 100MG PER DAY
     Route: 048
     Dates: start: 20070604, end: 20070605
  2. PROZAC [Concomitant]
  3. ADVAIR DISKUS 100/50 [Concomitant]
  4. LORATADINE [Concomitant]

REACTIONS (5)
  - EAR PAIN [None]
  - OROPHARYNGEAL PAIN [None]
  - PRURITUS [None]
  - RASH GENERALISED [None]
  - SWELLING FACE [None]
